FAERS Safety Report 7942306-5 (Version None)
Quarter: 2011Q4

REPORT INFORMATION
  Report Type: 
  Country: None (occurrence: None)
  Receive Date: 20111128
  Receipt Date: 20111118
  Transmission Date: 20120403
  Serious: No
  Sender: FDA-Public Use
  Company Number: US-ABBOTT-11P-163-0876146-00

PATIENT
  Age: 55 Year
  Sex: Male
  Weight: 111.23 kg

DRUGS (4)
  1. UNKNOWN MEDICATION [Concomitant]
     Indication: ANXIETY
  2. ANDROGEL [Suspect]
     Indication: BLOOD TESTOSTERONE DECREASED
     Dosage: 2 PUMPS PER DAY
  3. UNKNOWN MEDICATION [Concomitant]
     Indication: BLOOD GLUCOSE ABNORMAL
  4. UNKNOWN MEDICATION [Concomitant]
     Indication: BLOOD CHOLESTEROL

REACTIONS (4)
  - DRUG INEFFECTIVE [None]
  - NIGHT SWEATS [None]
  - DRUG ADMINISTERED AT INAPPROPRIATE SITE [None]
  - BLOOD TESTOSTERONE DECREASED [None]
